FAERS Safety Report 9319535 (Version 8)
Quarter: 2014Q2

REPORT INFORMATION
  Report Type: Spontaneous
  Country: US (occurrence: US)
  Receive Date: 20130530
  Receipt Date: 20140513
  Transmission Date: 20141212
  Serious: Yes (Death, Hospitalization)
  Sender: FDA-Public Use
  Company Number: US-GLAXOSMITHKLINE-A0999038A

PATIENT
  Age: 71 Year
  Sex: Female

DRUGS (4)
  1. FLOLAN [Suspect]
     Indication: PULMONARY ARTERIAL HYPERTENSION
     Dosage: 43.5NGKM CONTINUOUS
     Route: 065
     Dates: start: 20080303
  2. ADCIRCA [Concomitant]
  3. LASIX [Concomitant]
  4. OXYGEN [Concomitant]

REACTIONS (24)
  - Loss of consciousness [Unknown]
  - Investigation [Unknown]
  - Pneumonia [Unknown]
  - Hepatic cancer [Unknown]
  - Contusion [Unknown]
  - Scratch [Unknown]
  - Flushing [Unknown]
  - Generalised erythema [Unknown]
  - Medical device complication [Recovered/Resolved]
  - Dyspnoea exertional [Unknown]
  - Fall [Unknown]
  - Head injury [Unknown]
  - Laceration [Unknown]
  - Joint injury [Unknown]
  - Local swelling [Unknown]
  - Erythema [Unknown]
  - Pruritus [Unknown]
  - Stress [Unknown]
  - Confusional state [Unknown]
  - Nausea [Unknown]
  - Feeling drunk [Unknown]
  - Pyrexia [Unknown]
  - Pain in jaw [Unknown]
  - Death [Fatal]
